FAERS Safety Report 12247021 (Version 3)
Quarter: 2016Q2

REPORT INFORMATION
  Report Type: Report from Study
  Country: CA (occurrence: CA)
  Receive Date: 20160407
  Receipt Date: 20160628
  Transmission Date: 20160815
  Serious: Yes (Hospitalization)
  Sender: FDA-Public Use
  Company Number: PHHY2016CA043710

PATIENT
  Age: 71 Year
  Sex: Female

DRUGS (2)
  1. DESFERAL [Suspect]
     Active Substance: DEFEROXAMINE MESYLATE
     Indication: MYELODYSPLASTIC SYNDROME
     Route: 042
  2. EXJADE [Suspect]
     Active Substance: DEFERASIROX
     Indication: MYELODYSPLASTIC SYNDROME
     Dosage: UNK
     Route: 048
     Dates: start: 2013

REACTIONS (5)
  - Carotid artery occlusion [Unknown]
  - Headache [Unknown]
  - Skin infection [Unknown]
  - Asthenia [Unknown]
  - Serum ferritin increased [Unknown]

NARRATIVE: CASE EVENT DATE: 20160324
